FAERS Safety Report 7754954 (Version 4)
Quarter: 2012Q4

REPORT INFORMATION
  Report Type: 
  Country: US (occurrence: US)
  Receive Date: 20110111
  Receipt Date: 20120925
  Transmission Date: 20130627
  Serious: Yes (Hospitalization)
  Sender: FDA-Public Use
  Company Number: US-BAYER-2011-002634

PATIENT
  Age: 31 Year
  Sex: Female
  Weight: 58 kg

DRUGS (27)
  1. YAZ [Suspect]
     Indication: CONTRACEPTION
     Dosage: UNK
     Route: 048
     Dates: start: 20080131, end: 20081003
  2. YAZ [Suspect]
     Indication: PREMENSTRUAL SYNDROME
  3. YAZ [Suspect]
     Indication: MENSTRUAL CYCLE MANAGEMENT
  4. ANTIPROPULSIVES [Concomitant]
     Route: 048
  5. KLONOPIN [Concomitant]
     Route: 048
  6. PRILOSEC [Concomitant]
     Route: 048
  7. SEROQUEL [Concomitant]
     Route: 048
  8. PROZAC [Concomitant]
     Route: 048
  9. MOTRIN [Concomitant]
     Route: 048
  10. TORADOL [Concomitant]
     Dosage: 30 mg, UNK
     Route: 042
  11. PHENERGAN [Concomitant]
     Dosage: 25 mg, UNK
  12. IMITREX [Concomitant]
     Dosage: UNK mg, UNK
     Route: 048
  13. IMITREX [Concomitant]
     Dosage: 6 mg, UNK
     Route: 058
  14. TOPAMAX [Concomitant]
     Dosage: 25 mg, UNK
     Route: 048
     Dates: start: 20080825
  15. PERCOCET [Concomitant]
     Route: 048
  16. CHANTIX [Concomitant]
  17. MEDROL [Concomitant]
     Dosage: UNK
     Route: 048
     Dates: start: 200809
  18. AMERGE [Concomitant]
     Dosage: 1.25 mg, TID
     Dates: start: 20080927
  19. PROPOXYPHENE NAPSYLATE W/ACETAMINOPHENE [Concomitant]
     Dosage: 100-650 mg
  20. AZITHROMYCIN [Concomitant]
     Dosage: 250 mg, UNK
  21. HYDROCODONE W/ACETAMINOPHEN [Concomitant]
     Dosage: 7.5-750 mg
  22. REGLAN [Concomitant]
     Dosage: 10 mg, UNK
     Route: 042
     Dates: start: 20080922
  23. ZOFRAN [Concomitant]
     Dosage: 4 mg, UNK
     Route: 042
     Dates: start: 20080927
  24. DILAUDID [Concomitant]
     Dosage: 2 mg, UNK
     Route: 042
     Dates: start: 20080927
  25. OXYCODONE W/PARACETAMOL [Concomitant]
     Dosage: 5mg-325 mg
  26. METOCLOPRAMIDE [Concomitant]
     Dosage: 10 mg, UNK
  27. NAPROXEN [Concomitant]
     Dosage: 500 mg, UNK

REACTIONS (7)
  - Superior sagittal sinus thrombosis [None]
  - Intracranial venous sinus thrombosis [None]
  - Jugular vein thrombosis [None]
  - Intracranial venous sinus thrombosis [None]
  - Pain [None]
  - Fear [None]
  - Fear of disease [None]
